FAERS Safety Report 18294066 (Version 1)
Quarter: 2020Q3

REPORT INFORMATION
  Report Type: Spontaneous
  Country: US (occurrence: US)
  Receive Date: 20200922
  Receipt Date: 20200922
  Transmission Date: 20201103
  Serious: Yes (Disabling)
  Sender: FDA-Public Use
  Company Number: None

PATIENT
  Age: 38 Year
  Sex: Female
  Weight: 65.25 kg

DRUGS (3)
  1. NP THYROID [Suspect]
     Active Substance: LEVOTHYROXINE\LIOTHYRONINE
     Indication: HYPOTHYROIDISM
  2. BIT B COMPLEX [Concomitant]
  3. VIT D [Concomitant]
     Active Substance: VITAMIN D NOS

REACTIONS (3)
  - Mood swings [None]
  - Alopecia [None]
  - Product substitution issue [None]
